FAERS Safety Report 8184773-0 (Version None)
Quarter: 2012Q1

REPORT INFORMATION
  Report Type: 
  Country: None (occurrence: None)
  Receive Date: 20120305
  Receipt Date: 20120305
  Transmission Date: 20120608
  Serious: Yes (Hospitalization, Other)
  Sender: FDA-Public Use
  Company Number: None

PATIENT
  Age: 37 Year
  Sex: Female
  Weight: 86.182 kg

DRUGS (2)
  1. LITHIUM CARBONATE [Concomitant]
  2. DEPAKOTE [Suspect]

REACTIONS (1)
  - DEPRESSION [None]
